FAERS Safety Report 4510971-0 (Version None)
Quarter: 2004Q4

REPORT INFORMATION
  Report Type: 
  Country: None (occurrence: None)
  Receive Date: 20040928
  Receipt Date: 20040604
  Transmission Date: 20050328
  Serious: No
  Sender: FDA-Public Use
  Company Number: 04P-163-0262746-00

PATIENT
  Age: 36 Year
  Sex: Female
  Weight: 109.3169 kg

DRUGS (22)
  1. HUMIRA [Suspect]
     Indication: RHEUMATOID ARTHRITIS
     Dosage: 40 MG, 1 IN 2 WK, SUBCUTANEOUS
     Route: 058
     Dates: start: 20040322
  2. METHOTREXATE SODIUM [Concomitant]
  3. METHYLPREDNISOLONE [Concomitant]
  4. HYDROQUINIDINE HYDROCHLORIDE [Concomitant]
  5. DICLOFENAC SODIUM [Concomitant]
  6. GABAPENTIN [Concomitant]
  7. FOLIC ACID [Concomitant]
  8. VICODIN [Concomitant]
  9. MORPHINE SULFATE [Concomitant]
  10. FERROUS SULFATE TAB [Concomitant]
  11. GLYCEROL 2.6% [Concomitant]
  12. CENTRUM [Concomitant]
  13. VENLAFAXINE HYDROCHLORIDE [Concomitant]
  14. LOMOTIL [Concomitant]
  15. PANTOPRAZOLE [Concomitant]
  16. HEMORRHOID HC [Concomitant]
  17. PROCTOFOAM HC [Concomitant]
  18. CLOTRIMAZOLE [Concomitant]
  19. CARVEDILOL [Concomitant]
  20. LISINOPRIL [Concomitant]
  21. RANITIDINE [Concomitant]
  22. MOMETASONE FUROATE [Concomitant]

REACTIONS (1)
  - INJECTION SITE SWELLING [None]
